FAERS Safety Report 6620563-5 (Version None)
Quarter: 2010Q1

REPORT INFORMATION
  Report Type: 
  Country: None (occurrence: None)
  Receive Date: 20100309
  Receipt Date: 20100303
  Transmission Date: 20100710
  Serious: Yes (Hospitalization)
  Sender: FDA-Public Use
  Company Number: US-RB-001697-10

PATIENT
  Age: 25 Year
  Sex: Male

DRUGS (2)
  1. SUBOXONE [Suspect]
     Dosage: 16-24 MG DAILY
     Route: 060
     Dates: start: 20060101, end: 20080101
  2. SUBOXONE [Suspect]
     Dosage: 12-16 MG DAILY
     Route: 060
     Dates: start: 20080101

REACTIONS (6)
  - GALLBLADDER PAIN [None]
  - HEADACHE [None]
  - NAUSEA [None]
  - OESOPHAGITIS [None]
  - PANCREATITIS [None]
  - VOMITING [None]
